FAERS Safety Report 8035732-X (Version None)
Quarter: 2012Q1

REPORT INFORMATION
  Report Type: 
  Country: None (occurrence: None)
  Receive Date: 20120111
  Receipt Date: 20120106
  Transmission Date: 20120608
  Serious: Yes (Other)
  Sender: FDA-Public Use
  Company Number: US-BAYER-2011-094288

PATIENT
  Age: 57 Year
  Sex: Male

DRUGS (2)
  1. NEXAVAR [Suspect]
     Dosage: 200 MG, QD
     Dates: end: 20110101
  2. NEXAVAR [Suspect]
     Indication: RENAL CELL CARCINOMA
     Dosage: 400 MG, BID
     Route: 048
     Dates: start: 20110921, end: 20110901

REACTIONS (15)
  - HALLUCINATION [None]
  - WEIGHT DECREASED [None]
  - MIGRAINE [None]
  - DIZZINESS [None]
  - VOMITING [None]
  - DISORIENTATION [None]
  - MUSCLE SPASMS [None]
  - CONFUSIONAL STATE [None]
  - MYALGIA [None]
  - CHEST PAIN [None]
  - DYSPNOEA [None]
  - DECREASED APPETITE [None]
  - DIARRHOEA [None]
  - FATIGUE [None]
  - ANXIETY [None]
